FAERS Safety Report 24203394 (Version 1)
Quarter: 2024Q3

REPORT INFORMATION
  Report Type: Spontaneous
  Country: FR (occurrence: FR)
  Receive Date: 20240813
  Receipt Date: 20240813
  Transmission Date: 20241017
  Serious: Yes (Hospitalization)
  Sender: RECORDATI
  Company Number: None

PATIENT

DRUGS (5)
  1. DACTINOMYCIN [Suspect]
     Active Substance: DACTINOMYCIN
     Indication: Embryonal rhabdomyosarcoma
     Dosage: 1500 MICROGRAM/SQ. METER, EVERY 21 DAY
     Route: 042
     Dates: start: 20190216, end: 20190530
  2. VINCRISTINE SULFATE [Suspect]
     Active Substance: VINCRISTINE SULFATE
     Indication: Embryonal rhabdomyosarcoma
     Dosage: 1.5 MILLIGRAM/SQ. METER, EVERY 21 DAY
     Route: 042
     Dates: start: 20190216, end: 20190903
  3. IFOSFAMIDE [Suspect]
     Active Substance: IFOSFAMIDE
     Indication: Embryonal rhabdomyosarcoma
     Dosage: 3000 MILLIGRAM/SQ. METER, EVERY 21 DAY
     Route: 042
     Dates: start: 20190216, end: 20190903
  4. CYCLOPHOSPHAMIDE [Suspect]
     Active Substance: CYCLOPHOSPHAMIDE
     Indication: Embryonal rhabdomyosarcoma
     Dosage: 25 MILLIGRAM, EVERY 1 DAY
     Route: 048
  5. NAVELBINE [Suspect]
     Active Substance: VINORELBINE TARTRATE
     Indication: Embryonal rhabdomyosarcoma
     Dosage: 25 MILLIGRAM/SQ. METER, EVERY 1 MONTH
     Route: 042
     Dates: start: 20191004, end: 202010

REACTIONS (1)
  - Pulmonary sarcoidosis [Not Recovered/Not Resolved]

NARRATIVE: CASE EVENT DATE: 20210701
